FAERS Safety Report 10059721 (Version 2)
Quarter: 2014Q2

REPORT INFORMATION
  Report Type: Spontaneous
  Country: DE (occurrence: DE)
  Receive Date: 20140404
  Receipt Date: 20140503
  Transmission Date: 20141212
  Serious: Yes (Other)
  Sender: FDA-Public Use
  Company Number: PHHY2014DE040702

PATIENT
  Sex: 0

DRUGS (5)
  1. SANDIMMUN [Suspect]
     Indication: JUVENILE IDIOPATHIC ARTHRITIS
     Dosage: 100 MG/ML, 2 X0.5 ML
     Route: 048
     Dates: start: 201204, end: 201205
  2. SANDIMMUN [Suspect]
     Indication: OFF LABEL USE
  3. METHOTREXAT [Concomitant]
     Indication: JUVENILE IDIOPATHIC ARTHRITIS
     Dosage: 15 MG/ML, WEEKLY
  4. DECORTIN [Concomitant]
     Indication: JUVENILE IDIOPATHIC ARTHRITIS
     Dosage: 20 MG, QD
     Route: 048
  5. IBUPROFEN [Concomitant]
     Indication: JUVENILE IDIOPATHIC ARTHRITIS
     Dosage: 200 MG, BID
     Route: 048

REACTIONS (1)
  - Demyelination [Recovered/Resolved]
